FAERS Safety Report 8224102-7 (Version None)
Quarter: 2012Q1

REPORT INFORMATION
  Report Type: 
  Country: None (occurrence: None)
  Receive Date: 20120321
  Receipt Date: 20120315
  Transmission Date: 20120608
  Serious: Yes (Hospitalization)
  Sender: FDA-Public Use
  Company Number: US-PFIZER INC-2012047113

PATIENT
  Sex: Male
  Weight: 69.388 kg

DRUGS (1)
  1. BENZYLPENICILLIN POTASSIUM [Suspect]
     Dosage: UNK

REACTIONS (3)
  - DYSURIA [None]
  - DRUG HYPERSENSITIVITY [None]
  - SWELLING FACE [None]
